APPROVED DRUG PRODUCT: LOCOID
Active Ingredient: HYDROCORTISONE BUTYRATE
Strength: 0.1%
Dosage Form/Route: CREAM;TOPICAL
Application: N018514 | Product #001 | TE Code: AB1
Applicant: BAUSCH HEALTH US LLC
Approved: Mar 31, 1982 | RLD: Yes | RS: Yes | Type: RX